FAERS Safety Report 8021273-2 (Version None)
Quarter: 2012Q1

REPORT INFORMATION
  Report Type: 
  Country: None (occurrence: None)
  Receive Date: 20120104
  Receipt Date: 20111222
  Transmission Date: 20120608
  Serious: Yes (Other)
  Sender: FDA-Public Use
  Company Number: US-BAYER-2011-049697

PATIENT
  Sex: Female
  Weight: 101.59 kg

DRUGS (1)
  1. YAZ [Suspect]
     Indication: CONTRACEPTION
     Dosage: UNK
     Dates: start: 20090501

REACTIONS (8)
  - EMOTIONAL DISTRESS [None]
  - GENERAL PHYSICAL HEALTH DETERIORATION [None]
  - BOWEL MOVEMENT IRREGULARITY [None]
  - PAIN [None]
  - CHOLELITHIASIS [None]
  - INJURY [None]
  - DYSPNOEA [None]
  - ABDOMINAL PAIN UPPER [None]
